FAERS Safety Report 13079985 (Version 1)
Quarter: 2017Q1

REPORT INFORMATION
  Report Type: Spontaneous
  Country: US (occurrence: US)
  Receive Date: 20170103
  Receipt Date: 20170103
  Transmission Date: 20170428
  Serious: No
  Sender: FDA-Public Use
  Company Number: US-ASTRAZENECA-2016SF30004

PATIENT
  Age: 29193 Day
  Sex: Female
  Weight: 45.8 kg

DRUGS (11)
  1. LOSARTAN POTASSIUM HYDROCHLOROTHIAZIDE [Concomitant]
     Indication: BLOOD PRESSURE ABNORMAL
     Route: 048
     Dates: start: 2014
  2. VITAMIN D 3 [Concomitant]
     Indication: ILL-DEFINED DISORDER
     Dosage: 1000 IU, 2 TABLETS DAILY
     Route: 048
     Dates: start: 2012
  3. BRILINTA [Suspect]
     Active Substance: TICAGRELOR
     Indication: MYOCARDIAL INFARCTION
     Route: 048
     Dates: start: 20161117
  4. NITROGLYCERIN. [Concomitant]
     Active Substance: NITROGLYCERIN
     Indication: CHEST PAIN
     Dosage: 0.4MG AS REQUIRED
     Route: 060
     Dates: start: 20161117
  5. ASPIRIN. [Suspect]
     Active Substance: ASPIRIN
     Route: 048
     Dates: start: 20161117
  6. PANTOPRAZOLE SODIUM. [Concomitant]
     Active Substance: PANTOPRAZOLE SODIUM
     Route: 048
     Dates: start: 20161117
  7. BRILINTA [Suspect]
     Active Substance: TICAGRELOR
     Indication: COAGULOPATHY
     Route: 048
     Dates: start: 20161117
  8. CRESTOR [Suspect]
     Active Substance: ROSUVASTATIN CALCIUM
     Route: 048
     Dates: start: 20161117, end: 20161204
  9. ASPIRIN. [Suspect]
     Active Substance: ASPIRIN
     Dosage: 325MG
     Route: 048
     Dates: start: 2014
  10. SPIRONOLACTONE. [Concomitant]
     Active Substance: SPIRONOLACTONE
     Indication: BLOOD PRESSURE ABNORMAL
     Route: 048
     Dates: start: 2014
  11. CARVEDILOL. [Concomitant]
     Active Substance: CARVEDILOL
     Indication: ILL-DEFINED DISORDER
     Route: 048
     Dates: start: 20161117

REACTIONS (14)
  - Drug dose omission [Unknown]
  - Dizziness [Unknown]
  - Oropharyngeal pain [Unknown]
  - Product use issue [Unknown]
  - Cough [Unknown]
  - Cold sweat [Unknown]
  - Epistaxis [Unknown]
  - Malaise [Unknown]
  - Muscle disorder [Unknown]
  - Decreased appetite [Unknown]
  - Gait disturbance [Unknown]
  - Abdominal pain upper [Unknown]
  - Off label use [Unknown]
  - Abdominal pain [Unknown]

NARRATIVE: CASE EVENT DATE: 20161204
